FAERS Safety Report 4287285-X (Version None)
Quarter: 2004Q1

REPORT INFORMATION
  Report Type: 
  Country: None (occurrence: None)
  Receive Date: 20040205
  Receipt Date: 20040203
  Transmission Date: 20041129
  Serious: Yes (Death)
  Sender: FDA-Public Use
  Company Number: USA-2003-0007656

PATIENT
  Age: 36 Year
  Sex: Female

DRUGS (1)
  1. OXYCODONE HCL [Suspect]

REACTIONS (2)
  - ACCIDENT [None]
  - INJURY [None]
